FAERS Safety Report 17704427 (Version 5)
Quarter: 2020Q2

REPORT INFORMATION
  Report Type: Report from Study
  Country: FI (occurrence: FI)
  Receive Date: 20200424
  Receipt Date: 20200616
  Transmission Date: 20200714
  Serious: Yes (Hospitalization)
  Sender: FDA-Public Use
  Company Number: FI-ROCHE-2577409

PATIENT
  Age: 50 Year
  Sex: Female
  Weight: 65 kg

DRUGS (19)
  1. PERTUZUMAB. [Suspect]
     Active Substance: PERTUZUMAB
     Dosage: MAINTENANCE DOSE
     Route: 042
  2. PRIMPERAN [Concomitant]
     Active Substance: METOCLOPRAMIDE HYDROCHLORIDE
     Indication: INFUSION RELATED REACTION
     Route: 042
     Dates: start: 20190715, end: 20190715
  3. KALISOL [Concomitant]
     Indication: STAPHYLOCOCCAL INFECTION
     Route: 048
     Dates: start: 20200131, end: 20200131
  4. TARGINIQ ER [Concomitant]
     Active Substance: NALOXONE HYDROCHLORIDE\OXYCODONE HYDROCHLORIDE
     Indication: STAPHYLOCOCCAL INFECTION
     Route: 048
     Dates: start: 20200131, end: 20200203
  5. KEFALEX [Concomitant]
     Active Substance: CEPHALEXIN
     Indication: STAPHYLOCOCCAL INFECTION
     Route: 048
     Dates: start: 20200218, end: 20200225
  6. TRASTUZUMAB. [Suspect]
     Active Substance: TRASTUZUMAB
     Dosage: MAINTENANCE DOSE (393 MG)?DATE OF MOST RECENT DOSE OF TRASTUZUMAB PRIOR TO AE ONSET: 26/AUG/2019 AT
     Route: 041
  7. IBUMAX [Concomitant]
     Active Substance: IBUPROFEN
     Route: 048
     Dates: start: 20190730, end: 20190826
  8. ZOLADEX [Concomitant]
     Active Substance: GOSERELIN ACETATE
     Route: 058
     Dates: start: 20191007
  9. BURANA [Concomitant]
     Active Substance: IBUPROFEN
     Indication: STAPHYLOCOCCAL INFECTION
     Route: 048
     Dates: start: 20200130
  10. TRASTUZUMAB. [Suspect]
     Active Substance: TRASTUZUMAB
     Dosage: 600 MG PERTUZUMAB AND 600 MG TRASTUZUMAB ONCE EVERY 3 WEEKS (Q3W).?DATE OF MOST RECENT DOSE OF PERTU
     Route: 058
  11. TRASTUZUMAB. [Suspect]
     Active Substance: TRASTUZUMAB
     Indication: HER2 POSITIVE BREAST CANCER
     Dosage: LOADING DOSE. DATE UNIT OF LAST TRASTUZUMAB IIV ADMINISTERED PRIOR TO AE/SAE ONSET 26/AUG/2019 ON 12
     Route: 041
     Dates: start: 20190715, end: 20190715
  12. PERTUZUMAB. [Suspect]
     Active Substance: PERTUZUMAB
     Indication: HER2 POSITIVE BREAST CANCER
     Dosage: LOADING DOSE OF 1200 MG PERTUZUMAB AND 600 MG TRASTUZUMAB.
     Route: 058
     Dates: start: 20190916, end: 20190916
  13. DEXPANTHENOL;RETINOL;TOCOPHEROL [Concomitant]
     Indication: NASAL DRYNESS
     Dosage: INTRANASAL
     Route: 065
     Dates: start: 20191109
  14. MINISUN [Concomitant]
     Active Substance: CHOLECALCIFEROL
     Route: 048
  15. VAXIGRIPTETRA [Concomitant]
     Active Substance: INFLUENZA VIRUS VACCINE QUADRIVALENT TYPE A+B
     Route: 030
     Dates: start: 20191102, end: 20191102
  16. TAMOFEN [Concomitant]
     Active Substance: TAMOXIFEN CITRATE
     Route: 048
     Dates: start: 20190820
  17. METRONIDAZOLE. [Concomitant]
     Active Substance: METRONIDAZOLE
     Indication: STAPHYLOCOCCAL INFECTION
     Route: 042
     Dates: start: 20200129, end: 20200202
  18. PERTUZUMAB. [Suspect]
     Active Substance: PERTUZUMAB
     Indication: HER2 POSITIVE BREAST CANCER
     Dosage: LOADING DOSE. DOSE OF LAST PERTUZUMAB IV ADMINISTERED PRIOR TO AE ONSET:26/AUGL/2019 START TIME 09;4
     Route: 042
     Dates: start: 20190715, end: 20190715
  19. OXYRATIO [Concomitant]
     Indication: STAPHYLOCOCCAL INFECTION
     Route: 048
     Dates: start: 20200131, end: 20200131

REACTIONS (1)
  - Erysipelas [Recovered/Resolved]

NARRATIVE: CASE EVENT DATE: 20200327
